FAERS Safety Report 4492086-3 (Version None)
Quarter: 2004Q4

REPORT INFORMATION
  Report Type: 
  Country: None (occurrence: None)
  Receive Date: 20041101
  Receipt Date: 20041017
  Transmission Date: 20050328
  Serious: Yes (Other)
  Sender: FDA-Public Use
  Company Number: 2004081136

PATIENT
  Sex: 0

DRUGS (8)
  1. NEURONTIN [Suspect]
     Indication: ILL-DEFINED DISORDER
  2. FENTANYL [Suspect]
     Indication: ILL-DEFINED DISORDER
  3. OXYCODONE HYDROCHLORIDE AND ACETAMINOPHEN [Suspect]
     Indication: ILL-DEFINED DISORDER
  4. LIDOCAINE [Suspect]
     Indication: ILL-DEFINED DISORDER
  5. BACLOFEN [Suspect]
     Indication: ILL-DEFINED DISORDER
  6. AMANTADINE HCL [Suspect]
     Indication: ILL-DEFINED DISORDER
  7. ALL OTHER THERAPEUTIC PROUDCTS (ALL OTHER THERAPEUTIC PRODUCTS) [Suspect]
     Indication: ILL-DEFINED DISORDER
  8. INSULIN [Suspect]
     Indication: ILL-DEFINED DISORDER

REACTIONS (3)
  - DIABETES MELLITUS [None]
  - FIBROMYALGIA [None]
  - MULTIPLE SCLEROSIS [None]
